FAERS Safety Report 4698747-5 (Version None)
Quarter: 2005Q2

REPORT INFORMATION
  Report Type: 
  Country: None (occurrence: None)
  Receive Date: 20050621
  Receipt Date: 20050321
  Transmission Date: 20051028
  Serious: Yes (Other)
  Sender: FDA-Public Use
  Company Number: 2005055202

PATIENT
  Sex: Female
  Weight: 48.5349 kg

DRUGS (15)
  1. VFEND [Suspect]
     Indication: ASPERGILLOSIS
     Dosage: 400 MG (200 MG,2 IN 1 D), ORAL
     Route: 048
     Dates: start: 20040301
  2. PROGRAF [Concomitant]
  3. CELLCEPT [Concomitant]
  4. PREDNISONE [Concomitant]
  5. NEURONTIN [Concomitant]
  6. AVAPRO [Concomitant]
  7. BACTRIM [Concomitant]
  8. DIAMOX [Concomitant]
  9. ELAVIL [Concomitant]
  10. FLONASE [Concomitant]
  11. PREVACID [Concomitant]
  12. TETRACYCLINE [Concomitant]
  13. ZOLOFT [Concomitant]
  14. TYLENOL SINUS (PARACETAMOL, PSEUDOEPHEDRINE HYDROCHLORIDE) [Concomitant]
  15. TYLENOL [Concomitant]

REACTIONS (9)
  - BLISTER [None]
  - EPHELIDES [None]
  - LIMB DISCOMFORT [None]
  - ORAL PAIN [None]
  - PHOTOSENSITIVITY REACTION [None]
  - RASH MACULAR [None]
  - SKIN DISORDER [None]
  - SKIN FRAGILITY [None]
  - SKIN WRINKLING [None]
